FAERS Safety Report 15430844 (Version 2)
Quarter: 2018Q4

REPORT INFORMATION
  Report Type: Spontaneous
  Country: US (occurrence: US)
  Receive Date: 20180926
  Receipt Date: 20181022
  Transmission Date: 20190204
  Serious: No
  Sender: FDA-Public Use
  Company Number: US-GLAXOSMITHKLINE-US2018169169

PATIENT
  Sex: Female
  Weight: 61.68 kg

DRUGS (1)
  1. BREO ELLIPTA [Suspect]
     Active Substance: FLUTICASONE FUROATE\VILANTEROL TRIFENATATE
     Indication: ASTHMA
     Dosage: 1 PUFF(S), QD
     Dates: end: 20180914

REACTIONS (4)
  - Arthralgia [Recovering/Resolving]
  - Movement disorder [Recovering/Resolving]
  - Myalgia [Unknown]
  - Gait disturbance [Recovering/Resolving]
